FAERS Safety Report 9541801 (Version 1)
Quarter: 2013Q3

REPORT INFORMATION
  Report Type: Spontaneous
  Country: US (occurrence: None)
  Receive Date: 20130919
  Receipt Date: 20130919
  Transmission Date: 20140515
  Serious: Yes (Disabling)
  Sender: FDA-Public Use
  Company Number: None

PATIENT
  Age: 31 Year
  Sex: Female
  Weight: 63.96 kg

DRUGS (2)
  1. MS CONTIN [Suspect]
     Indication: THORACIC OUTLET SYNDROME
     Dosage: 110 TABS, 96 HOURS
     Route: 048
     Dates: start: 20070220
  2. MORPHINE SULPHATE [Concomitant]

REACTIONS (4)
  - Dry mouth [None]
  - Tooth discolouration [None]
  - Abscess [None]
  - Tooth fracture [None]
